FAERS Safety Report 4741605-8 (Version None)
Quarter: 2005Q3

REPORT INFORMATION
  Report Type: 
  Country: None (occurrence: None)
  Receive Date: 20050801
  Receipt Date: 20050624
  Transmission Date: 20060218
  Serious: No
  Sender: FDA-Public Use
  Company Number: 2005PV000129

PATIENT
  Age: 54 Year
  Sex: Female

DRUGS (10)
  1. BYETTA [Suspect]
     Indication: DIABETES MELLITUS NON-INSULIN-DEPENDENT
     Dosage: 5 UG; BID; SC
     Route: 058
     Dates: start: 20050620
  2. GLUCOPHAGE [Concomitant]
  3. AMARYL [Concomitant]
  4. VERELAN [Concomitant]
  5. LISINOPRIL [Concomitant]
  6. EZETIMIBE [Concomitant]
  7. CLARINEX [Concomitant]
  8. SINGULAIR [Concomitant]
  9. ASPIRIN [Concomitant]
  10. GUAIFENESIN [Concomitant]

REACTIONS (1)
  - DRUG INEFFECTIVE [None]
